FAERS Safety Report 16050640 (Version 1)
Quarter: 2019Q1

REPORT INFORMATION
  Report Type: Spontaneous
  Country: TR (occurrence: TR)
  Receive Date: 20190308
  Receipt Date: 20190308
  Transmission Date: 20190418
  Serious: Yes (Congenital Anomaly)
  Sender: FDA-Public Use
  Company Number: TR-TEVA-2019-TR-1020732

PATIENT
  Sex: Male

DRUGS (6)
  1. LEVOFLOXACIN. [Suspect]
     Active Substance: LEVOFLOXACIN
     Dosage: 750 MILLIGRAM DAILY;
     Route: 064
  2. NORETHISTERONE [Concomitant]
     Active Substance: NORETHINDRONE
     Route: 064
  3. ESTRADIOL. [Concomitant]
     Active Substance: ESTRADIOL
     Route: 064
  4. FLURBIPROFEN. [Suspect]
     Active Substance: FLURBIPROFEN
     Indication: SINUSITIS
     Dosage: 200 MILLIGRAM DAILY;
     Route: 064
  5. PSEUDOEPHEDRINE. [Suspect]
     Active Substance: PSEUDOEPHEDRINE HYDROCHLORIDE
     Dosage: 40 MILLIGRAM DAILY;
     Route: 064
  6. CETIRIZINE [Suspect]
     Active Substance: CETIRIZINE HYDROCHLORIDE
     Dosage: 10 MILLIGRAM DAILY;
     Route: 064

REACTIONS (2)
  - Cryptorchism [Unknown]
  - Foetal exposure during pregnancy [Unknown]
